FAERS Safety Report 9370310 (Version 2)
Quarter: 2013Q3

REPORT INFORMATION
  Report Type: Spontaneous
  Country: JP (occurrence: JP)
  Receive Date: 20130626
  Receipt Date: 20130702
  Transmission Date: 20140515
  Serious: Yes (Other)
  Sender: FDA-Public Use
  Company Number: JP-TEVA-414298ISR

PATIENT
  Sex: Male

DRUGS (4)
  1. THEOPHYLLINE TABLET 200MG^TYK^ [Suspect]
     Route: 048
     Dates: start: 20130612
  2. FLIVAS [Suspect]
     Route: 048
  3. EVIPROSTAT [Suspect]
     Route: 048
  4. KIPRES [Suspect]
     Route: 048

REACTIONS (1)
  - Urinary retention [Unknown]
